FAERS Safety Report 16016885 (Version 2)
Quarter: 2019Q2

REPORT INFORMATION
  Report Type: Spontaneous
  Country: US (occurrence: US)
  Receive Date: 20190228
  Receipt Date: 20190507
  Transmission Date: 20190711
  Serious: No
  Sender: FDA-Public Use
  Company Number: US-PFIZER INC-2019079954

PATIENT
  Age: 76 Year
  Sex: Female
  Weight: 58.97 kg

DRUGS (1)
  1. LYRICA [Suspect]
     Active Substance: PREGABALIN
     Indication: NEUROPATHY PERIPHERAL
     Dosage: 300 MG, 2X/DAY
     Route: 048

REACTIONS (3)
  - Arthralgia [Recovering/Resolving]
  - Withdrawal syndrome [Unknown]
  - Cold sweat [Unknown]

NARRATIVE: CASE EVENT DATE: 20190217
